FAERS Safety Report 4482573-6 (Version None)
Quarter: 2004Q4

REPORT INFORMATION
  Report Type: 
  Country: None (occurrence: None)
  Receive Date: 20041022
  Receipt Date: 20041015
  Transmission Date: 20050328
  Serious: Yes (Hospitalization, Other)
  Sender: FDA-Public Use
  Company Number: US-JNJFOC-20040400229

PATIENT
  Sex: Female

DRUGS (1)
  1. LEVAQUIN [Suspect]
     Indication: DRUG USE FOR UNKNOWN INDICATION
     Route: 049

REACTIONS (6)
  - CEREBROVASCULAR ACCIDENT [None]
  - JAW DISORDER [None]
  - RETCHING [None]
  - SPEECH DISORDER [None]
  - TENDON RUPTURE [None]
  - TRISMUS [None]
